FAERS Safety Report 6710065-X (Version None)
Quarter: 2010Q2

REPORT INFORMATION
  Report Type: 
  Country: None (occurrence: None)
  Receive Date: 20100504
  Receipt Date: 20100430
  Transmission Date: 20101027
  Serious: Yes (Life-Threatening, Hospitalization)
  Sender: FDA-Public Use
  Company Number: FR-MERCK-1004FRA00153

PATIENT
  Age: 68 Year
  Sex: Female

DRUGS (13)
  1. JANUMET [Suspect]
     Indication: DIABETES MELLITUS
     Route: 048
     Dates: start: 20100330, end: 20100412
  2. BISOPROLOL FUMARATE [Suspect]
     Route: 048
     Dates: start: 20100330, end: 20100412
  3. AMLODIPINE [Suspect]
     Route: 048
     Dates: start: 20050330, end: 20100412
  4. ASPIRIN LYSINE [Concomitant]
     Route: 048
  5. ESOMEPRAZOLE MAGNESIUM [Concomitant]
     Route: 048
  6. RAMIPRIL [Concomitant]
     Route: 048
  7. NICORANDIL [Concomitant]
     Route: 048
  8. GLYBURIDE [Concomitant]
     Route: 048
  9. INSULIN GLARGINE [Concomitant]
     Route: 058
     Dates: start: 20030101
  10. OMEGA-3 ACID ETHYL ESTERS [Concomitant]
     Route: 048
  11. FENOFIBRATE [Concomitant]
     Route: 048
  12. NITROGLYCERIN [Concomitant]
     Route: 065
  13. ACETAMINOPHEN [Concomitant]
     Route: 048

REACTIONS (2)
  - ATRIOVENTRICULAR BLOCK COMPLETE [None]
  - CARDIAC ARREST [None]
